FAERS Safety Report 16847418 (Version 1)
Quarter: 2019Q3

REPORT INFORMATION
  Report Type: Report from Study
  Country: CA (occurrence: CA)
  Receive Date: 20190924
  Receipt Date: 20190924
  Transmission Date: 20191005
  Serious: Yes (Disabling)
  Sender: FDA-Public Use
  Company Number: CA-HLSUS-2019-CA-001129

PATIENT
  Sex: Male
  Weight: 78 kg

DRUGS (1)
  1. CLOZAPINE. [Suspect]
     Active Substance: CLOZAPINE
     Indication: SCHIZOAFFECTIVE DISORDER
     Dosage: 300MG 1 EVERY 1 DAY
     Route: 048

REACTIONS (2)
  - Salivary hypersecretion [Recovered/Resolved with Sequelae]
  - Choking [Recovered/Resolved with Sequelae]
